FAERS Safety Report 8790731 (Version 1)
Quarter: 2012Q4

REPORT INFORMATION
  Report Type: Spontaneous
  Country: US (occurrence: None)
  Receive Date: 20120913
  Receipt Date: 20120913
  Transmission Date: 20130627
  Serious: No
  Sender: FDA-Public Use
  Company Number: None

PATIENT
  Age: 87 Year
  Sex: Female
  Weight: 52.3 kg

DRUGS (1)
  1. LIDODERM [Suspect]
     Indication: BACK PAIN
     Route: 061
     Dates: start: 20120827

REACTIONS (1)
  - Application site pain [None]
